FAERS Safety Report 16207148 (Version 1)
Quarter: 2019Q2

REPORT INFORMATION
  Report Type: Spontaneous
  Country: US (occurrence: US)
  Receive Date: 20190313
  Receipt Date: 20190313
  Transmission Date: 20190711
  Serious: No
  Sender: FDA-Public Use
  Company Number: None

PATIENT
  Age: 62 Year
  Sex: Male
  Weight: 66.6 kg

DRUGS (11)
  1. COENZYME Q10 [Concomitant]
     Active Substance: UBIDECARENONE
  2. TRIMIX (ALPROSTADIL\PAPAVERINE\PHENTOLAMINE) [Suspect]
     Active Substance: ALPROSTADIL\PAPAVERINE\PHENTOLAMINE
     Indication: ERECTILE DYSFUNCTION
     Dosage: ?          QUANTITY:.25 INJECTION(S);OTHER ROUTE:NONE?
     Dates: start: 20190313, end: 20190313
  3. ATORVASTATIN [Concomitant]
     Active Substance: ATORVASTATIN
  4. QUINOOL [Concomitant]
  5. FLAXSEED [Concomitant]
     Active Substance: FLAX SEED
  6. MAGNESIUM [Concomitant]
     Active Substance: MAGNESIUM
  7. VITAMIN D NOS [Concomitant]
     Active Substance: VITAMIN D NOS
  8. CIALIS [Concomitant]
     Active Substance: TADALAFIL
  9. AMYLODIPINE [Concomitant]
  10. METOPROLOL. [Concomitant]
     Active Substance: METOPROLOL
  11. VIAGRA [Concomitant]
     Active Substance: SILDENAFIL CITRATE

REACTIONS (3)
  - Syncope [None]
  - Penile pain [None]
  - Priapism [None]

NARRATIVE: CASE EVENT DATE: 20190313
